FAERS Safety Report 7090764-3 (Version None)
Quarter: 2010Q4

REPORT INFORMATION
  Report Type: 
  Country: None (occurrence: None)
  Receive Date: 20101012
  Receipt Date: 20100807
  Transmission Date: 20110411
  Serious: No
  Sender: FDA-Public Use
  Company Number: US-001250

PATIENT
  Age: 36 Year
  Sex: Male
  Weight: 128 kg

DRUGS (1)
  1. KUVAN [Suspect]
     Indication: PHENYLKETONURIA
     Dosage: 2600 MG QD, ORAL
     Route: 048
     Dates: start: 20100803

REACTIONS (2)
  - DIARRHOEA [None]
  - FLATULENCE [None]
